FAERS Safety Report 16858174 (Version 4)
Quarter: 2023Q4

REPORT INFORMATION
  Report Type: Spontaneous
  Country: US (occurrence: US)
  Receive Date: 20190926
  Receipt Date: 20231116
  Transmission Date: 20240110
  Serious: Yes (Hospitalization, Other)
  Sender: FDA-Public Use
  Company Number: US-GILEAD-2019-0429386

PATIENT
  Age: 20 Year
  Sex: Female
  Weight: 58.957 kg

DRUGS (44)
  1. TRUVADA [Suspect]
     Active Substance: EMTRICITABINE\TENOFOVIR DISOPROXIL FUMARATE
     Indication: HIV infection
     Dosage: UNK
     Route: 048
     Dates: start: 2004, end: 20140522
  2. TRUVADA [Suspect]
     Active Substance: EMTRICITABINE\TENOFOVIR DISOPROXIL FUMARATE
     Dosage: UNK
     Route: 048
     Dates: start: 200906, end: 20140522
  3. ATRIPLA [Suspect]
     Active Substance: EFAVIRENZ\EMTRICITABINE\TENOFOVIR DISOPROXIL FUMARATE
     Indication: HIV infection
     Dosage: UNK
     Route: 065
     Dates: end: 2018
  4. RENVELA [Concomitant]
     Active Substance: SEVELAMER CARBONATE
     Dosage: UNK
     Dates: start: 20200110
  5. SENSIPAR [Concomitant]
     Active Substance: CINACALCET HYDROCHLORIDE
     Dosage: UNK
     Dates: start: 20160120, end: 20171031
  6. EPIVIR [Concomitant]
     Active Substance: LAMIVUDINE
  7. EPZICOM [Concomitant]
     Active Substance: ABACAVIR SULFATE\LAMIVUDINE
  8. KALETRA [Concomitant]
     Active Substance: LOPINAVIR\RITONAVIR
  9. LEXIVA [Concomitant]
     Active Substance: FOSAMPRENAVIR CALCIUM
  10. NORVIR [Concomitant]
     Active Substance: RITONAVIR
  11. PREZISTA [Concomitant]
     Active Substance: DARUNAVIR ETHANOLATE
  12. RETROVIR [Concomitant]
     Active Substance: ZIDOVUDINE
  13. TRIZIVIR [Concomitant]
     Active Substance: ABACAVIR SULFATE\LAMIVUDINE\ZIDOVUDINE
  14. VIRACEPT [Concomitant]
     Active Substance: NELFINAVIR MESYLATE
  15. VIRAMUNE [Concomitant]
     Active Substance: NEVIRAPINE
  16. ZERIT [Concomitant]
     Active Substance: STAVUDINE
  17. AZITHROMYCIN [Concomitant]
     Active Substance: AZITHROMYCIN
  18. CEFDINIR [Concomitant]
     Active Substance: CEFDINIR
  19. DIOVAN [Concomitant]
     Active Substance: VALSARTAN
  20. FAMOTIDINE [Concomitant]
     Active Substance: FAMOTIDINE
  21. FUROSEMIDE [Concomitant]
     Active Substance: FUROSEMIDE
  22. GEMFIBROZIL [Concomitant]
     Active Substance: GEMFIBROZIL
  23. HYDROXYZINE [Concomitant]
     Active Substance: HYDROXYZINE HYDROCHLORIDE
  24. LISINOPRIL [Concomitant]
     Active Substance: LISINOPRIL
  25. METOPROLOL [Concomitant]
     Active Substance: METOPROLOL
  26. ONDANSETRON [Concomitant]
     Active Substance: ONDANSETRON
  27. PREDNISONE [Concomitant]
     Active Substance: PREDNISONE
  28. PRINIVIL [Concomitant]
     Active Substance: LISINOPRIL
  29. VANCENASE [Concomitant]
     Active Substance: BECLOMETHASONE DIPROPIONATE
  30. COZAAR [Concomitant]
     Active Substance: LOSARTAN POTASSIUM
  31. ZITHROMAX [Concomitant]
     Active Substance: AZITHROMYCIN DIHYDRATE
  32. ISENTRESS [Concomitant]
     Active Substance: RALTEGRAVIR POTASSIUM
  33. PREZCOBIX [Concomitant]
     Active Substance: COBICISTAT\DARUNAVIR ETHANOLATE
  34. SUSTIVA [Concomitant]
     Active Substance: EFAVIRENZ
  35. TIVICAY [Concomitant]
     Active Substance: DOLUTEGRAVIR SODIUM
  36. ZIAGEN [Concomitant]
     Active Substance: ABACAVIR SULFATE
  37. CLARITIN [Concomitant]
     Active Substance: LORATADINE
  38. METRONIDAZOLE [Concomitant]
     Active Substance: METRONIDAZOLE
  39. SULFAMETHOXAZOLE\TRIMETHOPRIM [Concomitant]
     Active Substance: SULFAMETHOXAZOLE\TRIMETHOPRIM
  40. VALTREX [Concomitant]
     Active Substance: VALACYCLOVIR HYDROCHLORIDE
  41. VITAMIN D2 [Concomitant]
     Active Substance: ERGOCALCIFEROL
  42. ALBUTEROL SULFATE [Concomitant]
     Active Substance: ALBUTEROL SULFATE
     Dosage: UNK
  43. CETIRIZINE [Concomitant]
     Active Substance: CETIRIZINE HYDROCHLORIDE
     Dosage: UNK
  44. FLUCONAZOLE [Concomitant]
     Active Substance: FLUCONAZOLE
     Dosage: UNK

REACTIONS (17)
  - End stage renal disease [Not Recovered/Not Resolved]
  - Renal failure [Not Recovered/Not Resolved]
  - Renal disorder [Unknown]
  - Renal impairment [Not Recovered/Not Resolved]
  - Bone density decreased [Unknown]
  - Emotional distress [Recovered/Resolved]
  - Loss of personal independence in daily activities [Not Recovered/Not Resolved]
  - Quality of life decreased [Not Recovered/Not Resolved]
  - Economic problem [Not Recovered/Not Resolved]
  - Decreased activity [Not Recovered/Not Resolved]
  - Anhedonia [Not Recovered/Not Resolved]
  - Anxiety [Not Recovered/Not Resolved]
  - Pain [Recovered/Resolved]
  - Blood creatinine increased [Unknown]
  - Fatigue [Unknown]
  - Dysstasia [Unknown]
  - Gait disturbance [Unknown]

NARRATIVE: CASE EVENT DATE: 20090901
